FAERS Safety Report 9640056 (Version 1)
Quarter: 2013Q4

REPORT INFORMATION
  Report Type: Report from Study
  Country: NL (occurrence: NL)
  Receive Date: 20131023
  Receipt Date: 20131023
  Transmission Date: 20140711
  Serious: Yes (Death)
  Sender: FDA-Public Use
  Company Number: PHHY2013NL118996

PATIENT
  Sex: Male

DRUGS (3)
  1. ZOMETA [Suspect]
     Indication: PROSTATE CANCER
     Dosage: 4 MG / 100ML, 1X PER 4 WEEKS
     Route: 042
  2. ZOMETA [Suspect]
     Dosage: 4 MG / 100ML, 1X PER 4 WEEKS
     Route: 042
     Dates: start: 20130905
  3. ZOMETA [Suspect]
     Dosage: 4 MG / 100ML, 1X PER 4 WEEKS
     Route: 042
     Dates: start: 20131003

REACTIONS (1)
  - Death [Fatal]
